FAERS Safety Report 9250260 (Version 2)
Quarter: 2013Q2

REPORT INFORMATION
  Report Type: Report from Study
  Country: JP (occurrence: JP)
  Receive Date: 20130424
  Receipt Date: 20130610
  Transmission Date: 20140414
  Serious: Yes (Death)
  Sender: FDA-Public Use
  Company Number: JP-ROCHE-1216999

PATIENT
  Age: 74 Year
  Sex: Male
  Weight: 60 kg

DRUGS (6)
  1. METHOXY POLYETHYLENE GLYCOL-EPOETIN BETA [Suspect]
     Indication: NEPHROGENIC ANAEMIA
     Route: 058
     Dates: start: 20120322, end: 20120425
  2. METHOXY POLYETHYLENE GLYCOL-EPOETIN BETA [Suspect]
     Indication: NEPHROGENIC ANAEMIA
     Route: 058
     Dates: start: 20120426, end: 20120613
  3. SODIUM BICARBONATE [Concomitant]
     Dosage: DRUG REPORTED AS JUSO
     Route: 048
     Dates: start: 20111206, end: 20120703
  4. KALIMATE [Concomitant]
     Route: 048
     Dates: start: 20111206, end: 20120703
  5. PARIET [Concomitant]
     Route: 048
     Dates: start: 20120113, end: 20120705
  6. FERROMIA [Concomitant]
     Route: 048
     Dates: start: 20120426, end: 20120705

REACTIONS (1)
  - Gastric cancer [Fatal]
